FAERS Safety Report 24204631 (Version 2)
Quarter: 2024Q3

REPORT INFORMATION
  Report Type: Spontaneous
  Country: JP (occurrence: JP)
  Receive Date: 20240813
  Receipt Date: 20240912
  Transmission Date: 20241016
  Serious: Yes (Other)
  Sender: REGENERON
  Company Number: JP-BAYER-2024A116094

PATIENT
  Age: 85 Year
  Sex: Male

DRUGS (1)
  1. EYLEA HD [Suspect]
     Active Substance: AFLIBERCEPT
     Indication: Neovascular age-related macular degeneration
     Dosage: 8 MG, ONCE RIGHT EYE; SOLUTION FOR INJECTION; 114.3 MG/ML
     Route: 031
     Dates: start: 20240627

REACTIONS (2)
  - Retinal vein thrombosis [Not Recovered/Not Resolved]
  - Intraocular pressure increased [Recovering/Resolving]

NARRATIVE: CASE EVENT DATE: 20240725
